FAERS Safety Report 14453238 (Version 2)
Quarter: 2018Q1

REPORT INFORMATION
  Report Type: Report from Study
  Country: US (occurrence: US)
  Receive Date: 20180129
  Receipt Date: 20180206
  Transmission Date: 20180509
  Serious: Yes (Hospitalization, Other)
  Sender: FDA-Public Use
  Company Number: US-GILEAD-2017-0311955

PATIENT
  Age: 67 Year
  Sex: Male
  Weight: 126.53 kg

DRUGS (26)
  1. ATORVASTATIN [Concomitant]
     Active Substance: ATORVASTATIN
  2. EMPAGLIFLOZIN [Concomitant]
     Active Substance: EMPAGLIFLOZIN
  3. LISPRO INSULIN [Concomitant]
     Active Substance: INSULIN LISPRO
  4. NOREPINEPHRINE BITARTRATE. [Concomitant]
     Active Substance: NOREPINEPHRINE BITARTRATE
  5. ACETAMINOPHEN. [Concomitant]
     Active Substance: ACETAMINOPHEN
  6. ZOLPIDEM [Concomitant]
     Active Substance: ZOLPIDEM\ZOLPIDEM TARTRATE
  7. SILDENAFIL. [Concomitant]
     Active Substance: SILDENAFIL
  8. AMBRISENTAN [Suspect]
     Active Substance: AMBRISENTAN
     Indication: PULMONARY ARTERIAL HYPERTENSION
     Dosage: 5 MG, BID
     Route: 048
  9. CLOPIDOGREL [Concomitant]
     Active Substance: CLOPIDOGREL BISULFATE
  10. UPTRAVI [Concomitant]
     Active Substance: SELEXIPAG
  11. DEXTROSE. [Concomitant]
     Active Substance: DEXTROSE
  12. GLUTOSE [Concomitant]
     Active Substance: DEXTROSE
  13. AMBRISENTAN [Suspect]
     Active Substance: AMBRISENTAN
     Dosage: 10 MG, QD
     Route: 048
  14. LEVOTHYROXINE. [Concomitant]
     Active Substance: LEVOTHYROXINE
  15. LOPERAMIDE [Concomitant]
     Active Substance: LOPERAMIDE
  16. BISACODYL. [Concomitant]
     Active Substance: BISACODYL
  17. LISINOPRIL. [Concomitant]
     Active Substance: LISINOPRIL
  18. SUCRALFATE. [Concomitant]
     Active Substance: SUCRALFATE
  19. PLAVIX [Concomitant]
     Active Substance: CLOPIDOGREL BISULFATE
  20. LASIX [Concomitant]
     Active Substance: FUROSEMIDE
  21. PIPERACILIN/TAZOBACTAM [Concomitant]
     Active Substance: PIPERACILLIN SODIUM\TAZOBACTAM SODIUM
  22. SERTRALINE [Concomitant]
     Active Substance: SERTRALINE HYDROCHLORIDE
  23. SODIUM CHLORIDE. [Concomitant]
     Active Substance: SODIUM CHLORIDE
  24. VASOPRESSIN. [Concomitant]
     Active Substance: VASOPRESSIN
  25. ZOFRAN [Concomitant]
     Active Substance: ONDANSETRON HYDROCHLORIDE
  26. TRAMADOL. [Concomitant]
     Active Substance: TRAMADOL

REACTIONS (3)
  - Sepsis [Recovered/Resolved]
  - Off label use [Unknown]
  - Septic shock [Recovered/Resolved]

NARRATIVE: CASE EVENT DATE: 20171206
